FAERS Safety Report 16919749 (Version 1)
Quarter: 2019Q4

REPORT INFORMATION
  Report Type: Spontaneous
  Country: US (occurrence: US)
  Receive Date: 20190823
  Receipt Date: 20190823
  Transmission Date: 20200122
  Serious: No
  Sender: FDA-Public Use
  Company Number: None

PATIENT
  Age: 50 Year
  Sex: Male

DRUGS (1)
  1. REPATHA [Suspect]
     Active Substance: EVOLOCUMAB
     Indication: ARTERIOSCLEROSIS CORONARY ARTERY
     Dosage: ?          OTHER FREQUENCY:EVERY2WEEKS;?
     Route: 058
     Dates: start: 20170322

REACTIONS (3)
  - Weight increased [None]
  - Vision blurred [None]
  - Hyperthyroidism [None]

NARRATIVE: CASE EVENT DATE: 201907
